FAERS Safety Report 11987118 (Version 1)
Quarter: 2016Q1

REPORT INFORMATION
  Report Type: Report from Study
  Country: US (occurrence: US)
  Receive Date: 20160202
  Receipt Date: 20160202
  Transmission Date: 20160526
  Serious: No
  Sender: FDA-Public Use
  Company Number: US-ABBVIE-15K-163-1337364-00

PATIENT
  Sex: Female

DRUGS (3)
  1. ACTHAR [Concomitant]
     Active Substance: CORTICOTROPIN
     Indication: POLYMYOSITIS
  2. PREDNISONE. [Concomitant]
     Active Substance: PREDNISONE
     Indication: PRODUCT USED FOR UNKNOWN INDICATION
     Dosage: TO 40 MG
  3. HUMIRA [Suspect]
     Active Substance: ADALIMUMAB
     Indication: RHEUMATOID ARTHRITIS
     Route: 065
     Dates: start: 20141121

REACTIONS (3)
  - Insomnia [Unknown]
  - Weight increased [Unknown]
  - Lipohypertrophy [Unknown]
